FAERS Safety Report 24704205 (Version 1)
Quarter: 2024Q4

REPORT INFORMATION
  Report Type: Report from Study
  Country: CN (occurrence: CN)
  Receive Date: 20241206
  Receipt Date: 20241206
  Transmission Date: 20250115
  Serious: Yes (Other)
  Sender: ALEXION PHARMACEUTICALS
  Company Number: CN-ASTRAZENECA-202411GLO025065CN

PATIENT
  Age: 7 Year

DRUGS (4)
  1. SELUMETINIB [Suspect]
     Active Substance: SELUMETINIB
     Dosage: 10 MILLIGRAM, BID
     Route: 065
  2. SELUMETINIB [Suspect]
     Active Substance: SELUMETINIB
     Dosage: 10 MILLIGRAM, BID
  3. SELUMETINIB [Suspect]
     Active Substance: SELUMETINIB
     Dosage: 10 MILLIGRAM, BID
     Route: 065
  4. SELUMETINIB [Suspect]
     Active Substance: SELUMETINIB
     Dosage: 10 MILLIGRAM, BID

REACTIONS (1)
  - Liver injury [Not Recovered/Not Resolved]
